FAERS Safety Report 10665357 (Version 3)
Quarter: 2015Q1

REPORT INFORMATION
  Report Type: Report from Study
  Country: CZ (occurrence: CZ)
  Receive Date: 20141219
  Receipt Date: 20150313
  Transmission Date: 20150720
  Serious: Yes (Hospitalization)
  Sender: FDA-Public Use
  Company Number: CZ-AMGEN-CZENI2014098070

PATIENT
  Age: 71 Year
  Sex: Male
  Weight: 95 kg

DRUGS (10)
  1. GLUCOPHAGE [Concomitant]
     Active Substance: METFORMIN HYDROCHLORIDE
     Dosage: 500 MG, UNK
  2. FRAXIPARINE                        /01437701/ [Concomitant]
     Active Substance: NADROPARIN CALCIUM
  3. DENOSUMAB [Suspect]
     Active Substance: DENOSUMAB
     Indication: METASTASES TO BONE
     Dosage: 120 MG, QWK
     Route: 058
     Dates: start: 20140203, end: 20141023
  4. PARALEN [Concomitant]
     Active Substance: ACETAMINOPHEN
     Dosage: 500 MUG, UNK
  5. PACLITAXEL. [Concomitant]
     Active Substance: PACLITAXEL
     Dosage: 9 UNK, Q3WK
     Route: 042
     Dates: start: 20140812, end: 20141223
  6. OMEPRAZOLE. [Concomitant]
     Active Substance: OMEPRAZOLE
  7. AGEN [Concomitant]
     Dosage: 10 MG, UNK
  8. OXYCONTIN [Concomitant]
     Active Substance: OXYCODONE HYDROCHLORIDE
     Dosage: 20 MUG, UNK
  9. KYLOTAN [Concomitant]
     Dosage: 80 MG, UNK
  10. CALCIUM VITAMIN D3 [Concomitant]
     Dosage: 600 UNK, UNK

REACTIONS (1)
  - Osteonecrosis of jaw [Recovered/Resolved]

NARRATIVE: CASE EVENT DATE: 20141127
